FAERS Safety Report 6257564-5 (Version None)
Quarter: 2009Q3

REPORT INFORMATION
  Report Type: 
  Country: None (occurrence: None)
  Receive Date: 20090706
  Receipt Date: 20090703
  Transmission Date: 20100115
  Serious: Yes (Death, Other)
  Sender: FDA-Public Use
  Company Number: PHHY2009BR27003

PATIENT
  Sex: Male

DRUGS (3)
  1. FORASEQ [Suspect]
     Indication: DYSPNOEA
     Dosage: UNK
     Dates: start: 20090501
  2. DIGOXIN [Concomitant]
  3. FURSEMIDA [Concomitant]

REACTIONS (2)
  - DYSPNOEA [None]
  - INFARCTION [None]
